FAERS Safety Report 5728316-7 (Version None)
Quarter: 2008Q2

REPORT INFORMATION
  Report Type: 
  Country: None (occurrence: None)
  Receive Date: 20080502
  Receipt Date: 20080502
  Transmission Date: 20081010
  Serious: Yes (Other)
  Sender: FDA-Public Use
  Company Number: None

PATIENT
  Age: 72 Year
  Sex: Female
  Weight: 81.6475 kg

DRUGS (2)
  1. LEVAQUIN [Suspect]
     Indication: LOWER RESPIRATORY TRACT INFECTION
     Dosage: 500MG DAILY PO
     Route: 048
     Dates: start: 20080418, end: 20080428
  2. PREDNISONE TAB [Suspect]
     Indication: ASTHMA
     Dosage: TAPER DAILY PO
     Route: 048
     Dates: start: 20080418, end: 20080428

REACTIONS (4)
  - ABASIA [None]
  - PAIN IN EXTREMITY [None]
  - TENDON DISORDER [None]
  - TENDONITIS [None]
